FAERS Safety Report 7318364-8 (Version None)
Quarter: 2011Q1

REPORT INFORMATION
  Report Type: 
  Country: None (occurrence: None)
  Receive Date: 20110217
  Receipt Date: 20110217
  Transmission Date: 20110831
  Serious: Yes (Other)
  Sender: FDA-Public Use
  Company Number: None

PATIENT
  Sex: Female
  Weight: 71.2147 kg

DRUGS (2)
  1. ZOLPIDEM [Suspect]
     Indication: FIBROMYALGIA
     Dosage: 1 1 PER EVENING PO
     Route: 048
     Dates: start: 20110204, end: 20110215
  2. ZOLPIDEM [Suspect]
     Indication: INSOMNIA
     Dosage: 1 1 PER EVENING PO
     Route: 048
     Dates: start: 20110204, end: 20110215

REACTIONS (4)
  - PRODUCT SUBSTITUTION ISSUE [None]
  - INITIAL INSOMNIA [None]
  - PRODUCT MEASURED POTENCY ISSUE [None]
  - MIDDLE INSOMNIA [None]
